FAERS Safety Report 8239391-2 (Version None)
Quarter: 2012Q1

REPORT INFORMATION
  Report Type: 
  Country: None (occurrence: None)
  Receive Date: 20120326
  Receipt Date: 20120313
  Transmission Date: 20120608
  Serious: Yes (Other)
  Sender: FDA-Public Use
  Company Number: FK201200804

PATIENT
  Age: 7 Year
  Sex: Male

DRUGS (2)
  1. PAMIDRONATE DISODIUM [Suspect]
     Indication: OSTEOPOROSIS
     Dosage: 30 MG/M2, MONTHLY FOR 12 MONTHS, 30MG/M2, EVERY 2 MONTHS, INTRAVENOUS (NOT OTHERWISE SPECIFIED)
     Route: 042
  2. CALCITRIOL (CACITRIOL) [Concomitant]

REACTIONS (1)
  - NEPHROCALCINOSIS [None]
